FAERS Safety Report 8101682-3 (Version None)
Quarter: 2012Q1

REPORT INFORMATION
  Report Type: 
  Country: None (occurrence: None)
  Receive Date: 20120129
  Receipt Date: 20111013
  Transmission Date: 20120608
  Serious: No
  Sender: FDA-Public Use
  Company Number: US-ABBOTT-11P-163-0863420-00

PATIENT
  Sex: Female
  Weight: 72.64 kg

DRUGS (10)
  1. HUMIRA [Suspect]
     Indication: RHEUMATOID ARTHRITIS
     Dates: start: 20100101
  2. HUMIRA [Suspect]
     Dates: end: 20110901
  3. HYDROCHLOROTHIAZIDE [Concomitant]
     Indication: HYPERTENSION
  4. VITAMIN D [Concomitant]
     Indication: VITAMIN SUPPLEMENTATION
  5. FOLIC ACID [Concomitant]
     Indication: SUPPLEMENTATION THERAPY
  6. HUMALOG [Concomitant]
     Indication: DIABETES MELLITUS
     Dosage: SLIDING SCALE
  7. LANTUS [Concomitant]
     Indication: DIABETES MELLITUS
  8. DIOVAN [Concomitant]
     Indication: HYPERTENSION
  9. MULTI-VITAMIN [Concomitant]
     Indication: VITAMIN SUPPLEMENTATION
  10. METHOTREXATE [Concomitant]
     Indication: RHEUMATOID ARTHRITIS

REACTIONS (10)
  - BURSITIS [None]
  - MALAISE [None]
  - PYREXIA [None]
  - BACK DISORDER [None]
  - INFLUENZA LIKE ILLNESS [None]
  - IMPAIRED HEALING [None]
  - ARTHROPATHY [None]
  - DIARRHOEA [None]
  - MOVEMENT DISORDER [None]
  - ARTHRALGIA [None]
